FAERS Safety Report 15927138 (Version 1)
Quarter: 2019Q1

REPORT INFORMATION
  Report Type: Spontaneous
  Country: US (occurrence: US)
  Receive Date: 20190206
  Receipt Date: 20190206
  Transmission Date: 20190417
  Serious: Yes (Death)
  Sender: FDA-Public Use
  Company Number: US-PFIZER INC-2019055208

PATIENT
  Age: 80 Year
  Sex: Female
  Weight: 53.52 kg

DRUGS (1)
  1. IBRANCE [Suspect]
     Active Substance: PALBOCICLIB
     Indication: BREAST CANCER
     Dosage: UNK, CYCLIC (ONCE A DAY BY MOUTH FOR 21 DAYS AND THEN OFF FOR 7 DAYS )
     Route: 048
     Dates: start: 2018

REACTIONS (6)
  - Malnutrition [Unknown]
  - Hypotension [Unknown]
  - Feeding disorder [Unknown]
  - Hypopnoea [Unknown]
  - Weight decreased [Unknown]
  - Death [Fatal]

NARRATIVE: CASE EVENT DATE: 20190111
